FAERS Safety Report 6054370-1 (Version None)
Quarter: 2009Q1

REPORT INFORMATION
  Report Type: 
  Country: None (occurrence: None)
  Receive Date: 20090123
  Receipt Date: 20090123
  Transmission Date: 20090719
  Serious: Yes (Other)
  Sender: FDA-Public Use
  Company Number: None

PATIENT
  Age: 11 Year
  Sex: Female
  Weight: 45.3597 kg

DRUGS (1)
  1. SINGULAIR [Suspect]
     Indication: ASTHMA
     Dosage: 10 MG QD PO
     Route: 048
     Dates: start: 20060401, end: 20080121

REACTIONS (4)
  - ABNORMAL BEHAVIOUR [None]
  - AFFECT LABILITY [None]
  - EDUCATIONAL PROBLEM [None]
  - FATIGUE [None]
